FAERS Safety Report 17533080 (Version 6)
Quarter: 2021Q2

REPORT INFORMATION
  Report Type: Spontaneous
  Country: US (occurrence: US)
  Receive Date: 20200312
  Receipt Date: 20210625
  Transmission Date: 20210716
  Serious: Yes (Hospitalization, Other)
  Sender: FDA-Public Use
  Company Number: US-GILEAD-2020-0454084

PATIENT
  Age: 62 Year
  Sex: Male
  Weight: 63.49 kg

DRUGS (23)
  1. KALETRA [Concomitant]
     Active Substance: LOPINAVIR\RITONAVIR
  2. ATORVASTATIN [Concomitant]
     Active Substance: ATORVASTATIN
  3. EMTRIVA [Concomitant]
     Active Substance: EMTRICITABINE
  4. LAMIVUDINE. [Concomitant]
     Active Substance: LAMIVUDINE
  5. NORVIR [Concomitant]
     Active Substance: RITONAVIR
  6. PENICILLIN NOS [Concomitant]
     Active Substance: PENICILLIN
  7. ISENTRESS [Concomitant]
     Active Substance: RALTEGRAVIR POTASSIUM
  8. ASPIRIN (E.C.) [Concomitant]
     Active Substance: ASPIRIN
  9. BACTRIM [Concomitant]
     Active Substance: SULFAMETHOXAZOLE\TRIMETHOPRIM
  10. TIVICAY [Concomitant]
     Active Substance: DOLUTEGRAVIR SODIUM
  11. TRUVADA [Suspect]
     Active Substance: EMTRICITABINE\TENOFOVIR DISOPROXIL FUMARATE
     Dosage: UNK
     Route: 048
  12. ACETAMINOPHEN. [Concomitant]
     Active Substance: ACETAMINOPHEN
  13. COMBIVIR [Concomitant]
     Active Substance: LAMIVUDINE\ZIDOVUDINE
  14. CRIXIVAN [Concomitant]
     Active Substance: INDINAVIR SULFATE
  15. EPIVIR [Concomitant]
     Active Substance: LAMIVUDINE
  16. TRUVADA [Suspect]
     Active Substance: EMTRICITABINE\TENOFOVIR DISOPROXIL FUMARATE
     Indication: HIV INFECTION
     Dosage: UNK
     Route: 048
     Dates: start: 20080903, end: 20110716
  17. CARVEDILOL. [Concomitant]
     Active Substance: CARVEDILOL
  18. HEPARIN [Concomitant]
     Active Substance: HEPARIN SODIUM
  19. ROCEPHIN [Concomitant]
     Active Substance: CEFTRIAXONE SODIUM
  20. PREZCOBIX [Concomitant]
     Active Substance: COBICISTAT\DARUNAVIR ETHANOLATE
  21. FAMOTIDINE. [Concomitant]
     Active Substance: FAMOTIDINE
  22. AMOXICILLIN. [Concomitant]
     Active Substance: AMOXICILLIN
  23. REYATAZ [Concomitant]
     Active Substance: ATAZANAVIR SULFATE

REACTIONS (8)
  - Economic problem [Not Recovered/Not Resolved]
  - Pain [Not Recovered/Not Resolved]
  - End stage renal disease [Not Recovered/Not Resolved]
  - Gait disturbance [Unknown]
  - Chronic kidney disease [Not Recovered/Not Resolved]
  - Emotional distress [Not Recovered/Not Resolved]
  - Renal failure [Unknown]
  - Dysstasia [Unknown]

NARRATIVE: CASE EVENT DATE: 20160629
